FAERS Safety Report 7184332-2 (Version None)
Quarter: 2010Q4

REPORT INFORMATION
  Report Type: 
  Country: None (occurrence: None)
  Receive Date: 20101222
  Receipt Date: 20100521
  Transmission Date: 20110411
  Serious: No
  Sender: FDA-Public Use
  Company Number: US-AMGEN-KDL413716

PATIENT

DRUGS (12)
  1. ENBREL [Suspect]
     Indication: PRODUCT USED FOR UNKNOWN INDICATION
     Dosage: 50 MG, QWK
     Route: 058
  2. FUROSEMIDE [Concomitant]
     Dosage: 20 MG, UNK
     Route: 048
  3. CARVEDILOL [Concomitant]
     Dosage: 3.125 MG, UNK
     Route: 048
  4. METFORMIN [Concomitant]
     Dosage: 500 MG, UNK
     Route: 048
  5. LISINOPRIL [Concomitant]
     Dosage: 2.5 MG, UNK
     Route: 048
  6. GLIPIZIDE [Concomitant]
     Dosage: 5 MG, UNK
     Route: 048
  7. FLUTICASONE/SALMETEROL [Concomitant]
  8. ROSUVASTATIN CALCIUM [Concomitant]
     Dosage: 5 MG, UNK
     Route: 048
  9. WARFARIN [Concomitant]
     Dosage: 1 MG, UNK
     Route: 048
  10. CLOPIDOGREL BISULFATE [Concomitant]
     Dosage: 75 MG, UNK
     Route: 048
  11. ASPIRIN [Concomitant]
     Dosage: 81 MG, UNK
     Route: 048
  12. IRON [Concomitant]
     Dosage: 325 MG, UNK
     Route: 048

REACTIONS (2)
  - INJECTION SITE ERYTHEMA [None]
  - INJECTION SITE HAEMATOMA [None]
